FAERS Safety Report 7718605-9 (Version None)
Quarter: 2011Q3

REPORT INFORMATION
  Report Type: 
  Country: None (occurrence: None)
  Receive Date: 20110830
  Receipt Date: 20110819
  Transmission Date: 20111222
  Serious: Yes (Death)
  Sender: FDA-Public Use
  Company Number: JP-BAYER-2011-067795

PATIENT
  Age: 72 Year
  Sex: Male
  Weight: 79 kg

DRUGS (8)
  1. URSO 250 [Concomitant]
     Indication: HEPATIC CIRRHOSIS
     Dosage: DAILY DOSE 900 MG
     Route: 048
     Dates: start: 20060928, end: 20110730
  2. NEXAVAR [Suspect]
     Indication: HEPATIC NEOPLASM MALIGNANT
     Dosage: 200 MG, BID
     Route: 048
     Dates: start: 20100911, end: 20110224
  3. SHAKUYAKUKANZOUTOU [Concomitant]
     Indication: MUSCLE SPASMS
     Dosage: DAILY DOSE 7.5 G
     Route: 048
     Dates: start: 20110307, end: 20110730
  4. SPIRONOLACTONE [Concomitant]
     Indication: ASCITES
     Dosage: DAILY DOSE 25 MG
     Route: 048
     Dates: start: 20110223, end: 20110802
  5. NEXAVAR [Suspect]
     Dosage: 200 MG, BID
     Route: 048
     Dates: start: 20110302, end: 20110722
  6. FAMOSTAGINE [Concomitant]
     Indication: GASTRIC ULCER
     Dosage: DAILY DOSE 20 MG
     Route: 048
     Dates: start: 20100401, end: 20110725
  7. LIVACT [Concomitant]
     Indication: HYPOALBUMINAEMIA
     Dosage: DAILY DOSE 12.45 G
     Route: 048
     Dates: start: 20110224, end: 20110802
  8. LAC B [Concomitant]
     Indication: DIARRHOEA
     Dosage: DAILY DOSE 3 G
     Route: 048
     Dates: start: 20110407, end: 20110730

REACTIONS (5)
  - PORTAL VEIN THROMBOSIS [None]
  - MALAISE [None]
  - DECREASED APPETITE [None]
  - HAEMATEMESIS [None]
  - ASCITES [None]
